FAERS Safety Report 5656347-4 (Version None)
Quarter: 2008Q1

REPORT INFORMATION
  Report Type: 
  Country: None (occurrence: None)
  Receive Date: 20080309
  Receipt Date: 20080131
  Transmission Date: 20080703
  Serious: No
  Sender: FDA-Public Use
  Company Number: US-BAYER-200713890BCC

PATIENT
  Age: 65 Year
  Sex: Male
  Weight: 84 kg

DRUGS (3)
  1. ALEVE [Suspect]
     Indication: SCIATICA
     Dosage: AS USED: 220 MG  UNIT DOSE: 220 MG
     Route: 048
     Dates: start: 20071120
  2. HIGH BLOOD PRESSURE MEDICATION [Concomitant]
  3. LORATADINE [Concomitant]

REACTIONS (1)
  - FLUSHING [None]
